FAERS Safety Report 15915781 (Version 4)
Quarter: 2019Q2

REPORT INFORMATION
  Report Type: Spontaneous
  Country: US (occurrence: US)
  Receive Date: 20190204
  Receipt Date: 20190513
  Transmission Date: 20190711
  Serious: Yes (Other)
  Sender: FDA-Public Use
  Company Number: US-ABBVIE-18K-163-2608890-00

PATIENT
  Sex: Female

DRUGS (1)
  1. HUMIRA [Suspect]
     Active Substance: ADALIMUMAB
     Indication: PRODUCT USED FOR UNKNOWN INDICATION
     Route: 058

REACTIONS (9)
  - Spondylitis [Unknown]
  - Depression [Unknown]
  - Stress [Unknown]
  - Emotional distress [Unknown]
  - Condition aggravated [Unknown]
  - Suicidal ideation [Unknown]
  - Hidradenitis [Unknown]
  - Loss of personal independence in daily activities [Unknown]
  - Anxiety [Unknown]

NARRATIVE: CASE EVENT DATE: 2018
